FAERS Safety Report 5924124-2 (Version None)
Quarter: 2008Q4

REPORT INFORMATION
  Report Type: 
  Country: None (occurrence: None)
  Receive Date: 20081020
  Receipt Date: 20081009
  Transmission Date: 20090506
  Serious: Yes (Other)
  Sender: FDA-Public Use
  Company Number: JP-JNJFOC-20081004190

PATIENT
  Age: 9 Year

DRUGS (2)
  1. TOPINA [Suspect]
     Indication: EPILEPSY
     Route: 048
  2. ZONEGRAN [Concomitant]
     Indication: EPILEPSY
     Route: 048

REACTIONS (1)
  - DENTAL CARIES [None]
